FAERS Safety Report 4540884-X (Version None)
Quarter: 2004Q4

REPORT INFORMATION
  Report Type: 
  Country: None (occurrence: None)
  Receive Date: 20041228
  Receipt Date: 20041220
  Transmission Date: 20050328
  Serious: Yes (Hospitalization)
  Sender: FDA-Public Use
  Company Number: 2004GB03144

PATIENT
  Age: 75 Year
  Sex: Female

DRUGS (12)
  1. LISINOPRIL [Suspect]
     Indication: VENTRICULAR DYSFUNCTION
     Dosage: 10 MG QD PO
     Route: 048
     Dates: end: 20041202
  2. ISOSORBIDE MONONITRATE [Suspect]
     Indication: MYOCARDIAL INFARCTION
     Dosage: 60 MG QD PO
     Route: 048
     Dates: end: 20041202
  3. DILTIAZEM [Suspect]
     Indication: VENTRICULAR DYSFUNCTION
     Dosage: 60 MG TID PO
     Route: 048
     Dates: end: 20041202
  4. LACTULOSE [Concomitant]
  5. SIMVASTATIN [Concomitant]
  6. SERETIDE DISKUS [Concomitant]
  7. TIOTROPIUM BROMIDE [Concomitant]
  8. LANSOPRAZOLE [Concomitant]
  9. CALCICHEW [Concomitant]
  10. AMITRIPTYLINE [Concomitant]
  11. ASPIRIN [Concomitant]
  12. CLOPIDOGREL [Concomitant]

REACTIONS (1)
  - CIRCULATORY COLLAPSE [None]
